FAERS Safety Report 25342944 (Version 1)
Quarter: 2025Q2

REPORT INFORMATION
  Report Type: Spontaneous
  Country: US (occurrence: US)
  Receive Date: 20250521
  Receipt Date: 20250521
  Transmission Date: 20250717
  Serious: Yes (Disabling, Other)
  Sender: BAYER HEALTHCARE LLC
  Company Number: US-BAYER-2025A066578

PATIENT
  Sex: Female

DRUGS (1)
  1. MEXSANA MEDICATED [Suspect]
     Active Substance: STARCH, CORN

REACTIONS (7)
  - Epithelioid mesothelioma [None]
  - Disability [None]
  - Exposure to chemical pollution [None]
  - Physical disability [None]
  - Deformity [None]
  - Anxiety [None]
  - Anhedonia [None]
